FAERS Safety Report 22214914 (Version 2)
Quarter: 2023Q2

REPORT INFORMATION
  Report Type: Report from Study
  Country: BE (occurrence: BE)
  Receive Date: 20230415
  Receipt Date: 20230425
  Transmission Date: 20230721
  Serious: Yes (Death, Other)
  Sender: FDA-Public Use
  Company Number: BE-Ipsen Biopharmaceuticals, Inc.-2023-08772

PATIENT
  Age: 54 Year
  Sex: Male
  Weight: 67 kg

DRUGS (1)
  1. LANREOTIDE ACETATE [Suspect]
     Active Substance: LANREOTIDE ACETATE
     Indication: Malignant peritoneal neoplasm
     Dosage: 1.00 X PER 4 WEKEN
     Route: 058
     Dates: start: 20230314

REACTIONS (1)
  - Death [Fatal]

NARRATIVE: CASE EVENT DATE: 20230408
